FAERS Safety Report 5508143-6 (Version None)
Quarter: 2007Q4

REPORT INFORMATION
  Report Type: 
  Country: None (occurrence: None)
  Receive Date: 20071106
  Receipt Date: 20071025
  Transmission Date: 20080405
  Serious: Yes (Hospitalization, Other)
  Sender: FDA-Public Use
  Company Number: FR-PFIZER INC-2007082995

PATIENT
  Sex: Male
  Weight: 73 kg

DRUGS (5)
  1. AMLOR [Suspect]
     Indication: HYPERTENSION
     Route: 048
     Dates: start: 20010529, end: 20070101
  2. ATACAND [Concomitant]
     Indication: HYPERTENSION
     Dosage: TEXT:1 DF DAILY
     Route: 048
  3. ALLOPURINOL [Concomitant]
     Indication: HYPERURICAEMIA
     Route: 048
  4. INEXIUM [Concomitant]
     Indication: GASTROOESOPHAGEAL REFLUX DISEASE
  5. LEVOTHYROX [Concomitant]
     Indication: HYPERTHYROIDISM
     Dosage: DAILY DOSE:75MG
     Route: 048

REACTIONS (1)
  - PULMONARY FIBROSIS [None]
